FAERS Safety Report 9578416 (Version 2)
Quarter: 2013Q4

REPORT INFORMATION
  Report Type: Spontaneous
  Country: US (occurrence: US)
  Receive Date: 20131001
  Receipt Date: 20131001
  Transmission Date: 20140711
  Serious: No
  Sender: FDA-Public Use
  Company Number: US-AMGEN-USASP2013004244

PATIENT
  Age: 53 Year
  Sex: Male
  Weight: 104.76 kg

DRUGS (3)
  1. ENBREL [Suspect]
     Indication: PSORIATIC ARTHROPATHY
     Dosage: 50 MG, INCREASED TO EVERY 5 DAYS
     Route: 058
     Dates: start: 20121112
  2. ENBREL [Suspect]
     Indication: PSORIASIS
  3. MTX                                /00113801/ [Concomitant]
     Dosage: UNK UNK, QWK
     Route: 058

REACTIONS (2)
  - Headache [Recovered/Resolved]
  - Psoriasis [Not Recovered/Not Resolved]
